FAERS Safety Report 7920099-5 (Version None)
Quarter: 2011Q4

REPORT INFORMATION
  Report Type: 
  Country: None (occurrence: None)
  Receive Date: 20111117
  Receipt Date: 20111107
  Transmission Date: 20120403
  Serious: Yes (Hospitalization, Other)
  Sender: FDA-Public Use
  Company Number: US-BAYER-2011-052639

PATIENT
  Sex: Female
  Weight: 54.422 kg

DRUGS (14)
  1. DARVOCET [Concomitant]
     Indication: PAIN
     Dosage: UNK
     Dates: start: 20080130
  2. MOTRIN [Concomitant]
     Indication: PAIN
     Dosage: UNK
     Dates: start: 20080130, end: 20080131
  3. DEXTROSE IN LACTATED RINGER'S [Concomitant]
     Dosage: UNK
     Route: 042
     Dates: start: 20080130
  4. PITOCIN [Concomitant]
     Indication: POSTPARTUM UTERINE SUBINVOLUTION
     Dosage: UNK
     Route: 042
     Dates: start: 20080130, end: 20080131
  5. NUBAIN [Concomitant]
     Dosage: UNK
     Dates: start: 20080130
  6. YASMIN [Suspect]
     Dosage: UNK
     Dates: start: 20080101
  7. XYLOCAINE [Concomitant]
     Dosage: UNK
     Dates: start: 20080130
  8. STADOL [Concomitant]
     Dosage: UNK
     Dates: start: 20080130
  9. METHERGINE [Concomitant]
     Dosage: UNK
     Dates: start: 20080130
  10. PERCOCET [Concomitant]
     Dosage: UNK
     Dates: start: 20080131
  11. FERROUS SULFATE TAB [Concomitant]
     Dosage: UNK UNK, QD
     Route: 048
     Dates: start: 20080130
  12. NATALCARE [Concomitant]
     Dosage: UNK UNK, QD
     Route: 048
  13. PHENERGAN [Concomitant]
     Dosage: UNK
     Dates: start: 20080130
  14. KEFLEX [Concomitant]
     Dosage: UNK
     Dates: start: 20080131

REACTIONS (5)
  - INJURY [None]
  - CHOLECYSTITIS CHRONIC [None]
  - PAIN [None]
  - GALLBLADDER CHOLESTEROLOSIS [None]
  - CHOLELITHIASIS [None]
